FAERS Safety Report 8141447-X (Version None)
Quarter: 2012Q1

REPORT INFORMATION
  Report Type: 
  Country: None (occurrence: None)
  Receive Date: 20120216
  Receipt Date: 20120207
  Transmission Date: 20120608
  Serious: Yes (Other)
  Sender: FDA-Public Use
  Company Number: DE-ROCHE-1022495

PATIENT
  Age: 69 Year
  Sex: Male

DRUGS (4)
  1. TOBRADEX [Concomitant]
  2. RANIBIZUMAB [Suspect]
     Dates: start: 20110608
  3. RANIBIZUMAB [Suspect]
     Indication: AGE-RELATED MACULAR DEGENERATION
     Route: 050
     Dates: start: 20110511
  4. AZOPT [Concomitant]

REACTIONS (2)
  - MYOCARDIAL INFARCTION [None]
  - FALL [None]
